FAERS Safety Report 15320706 (Version 1)
Quarter: 2018Q3

REPORT INFORMATION
  Report Type: Spontaneous
  Country: US (occurrence: US)
  Receive Date: 20180821
  Receipt Date: 20180821
  Transmission Date: 20181010
  Serious: Yes (Other)
  Sender: FDA-Public Use
  Company Number: None

PATIENT
  Age: 32 Year
  Sex: Female
  Weight: 50 kg

DRUGS (1)
  1. FERAHEME [Suspect]
     Active Substance: FERUMOXYTOL NON-STOICHIOMETRIC MAGNETITE
     Indication: ANAEMIA
     Dosage: ?          OTHER FREQUENCY:ONE TIME DOSE;?
     Route: 042

REACTIONS (5)
  - Bronchospasm [None]
  - Cough [None]
  - Asthma [None]
  - Back pain [None]
  - Nausea [None]

NARRATIVE: CASE EVENT DATE: 20180601
